FAERS Safety Report 8051568-8 (Version None)
Quarter: 2012Q1

REPORT INFORMATION
  Report Type: 
  Country: None (occurrence: None)
  Receive Date: 20120117
  Receipt Date: 20120104
  Transmission Date: 20120608
  Serious: Yes (Other)
  Sender: FDA-Public Use
  Company Number: JP-MYLANLABS-2012S1000488

PATIENT
  Age: 44 Year
  Sex: Female

DRUGS (17)
  1. FLUOROURACIL [Suspect]
     Dosage: 400 MG/M2 Q3W
     Route: 040
     Dates: start: 20100301
  2. FLUOROURACIL [Suspect]
     Dosage: 2400 MG/M2 Q3W
     Route: 041
     Dates: start: 20100301
  3. LEUCOVORIN CALCIUM [Suspect]
     Dosage: Q3W
     Route: 065
     Dates: start: 20100715
  4. BEVACIZUMAB [Suspect]
     Dosage: Q3W
     Route: 065
  5. IRINOTECAN HCL [Suspect]
     Indication: COLON CANCER METASTATIC
     Dosage: 150 MG/M2 Q3W
     Route: 065
     Dates: start: 20100301
  6. FLUOROURACIL [Suspect]
     Dosage: 600 MG/M2 D1-2 Q2W
     Route: 041
     Dates: start: 20090810
  7. FLUOROURACIL [Suspect]
     Dosage: Q3W
     Route: 065
  8. FLUOROURACIL [Suspect]
     Indication: COLON CANCER METASTATIC
     Dosage: 400 MG/M2 D1-2 Q2W
     Route: 040
     Dates: start: 20090810
  9. FLUOROURACIL [Suspect]
     Dosage: Q3W
     Route: 065
     Dates: start: 20100715
  10. LEUCOVORIN CALCIUM [Suspect]
     Dosage: 200 MG/M2 Q3W
     Route: 065
     Dates: start: 20100301
  11. OXALIPLATIN [Suspect]
     Dosage: 65 MG/M2 Q3W
     Route: 065
  12. BEVACIZUMAB [Suspect]
     Indication: COLON CANCER METASTATIC
     Dosage: 5 MG/KG D1 Q3W
     Route: 065
  13. OXALIPLATIN [Suspect]
     Indication: COLON CANCER METASTATIC
     Dosage: 85 MG/M2 D1 Q2W
     Route: 065
     Dates: start: 20090810
  14. OXALIPLATIN [Suspect]
     Dosage: Q3W
     Route: 065
     Dates: start: 20100715
  15. LEUCOVORIN CALCIUM [Suspect]
     Dosage: Q3W
     Route: 065
  16. PANITUMUMAB [Suspect]
     Indication: COLON CANCER METASTATIC
     Dosage: 6 MG/KG D1 Q3W
     Route: 065
     Dates: start: 20100715
  17. LEUCOVORIN CALCIUM [Suspect]
     Indication: COLON CANCER METASTATIC
     Dosage: 100 MG/M2 D1-2 Q2W
     Route: 065
     Dates: start: 20090810

REACTIONS (3)
  - RASH [None]
  - NEUTROPENIA [None]
  - NEUROTOXICITY [None]
